FAERS Safety Report 9822416 (Version 2)
Quarter: 2014Q1

REPORT INFORMATION
  Report Type: Spontaneous
  Country: JP (occurrence: JP)
  Receive Date: 20140116
  Receipt Date: 20140211
  Transmission Date: 20141002
  Serious: Yes (Hospitalization, Disabling)
  Sender: FDA-Public Use
  Company Number: JP-JNJFOC-20140104254

PATIENT
  Age: 79 Year
  Sex: Male
  Weight: 60 kg

DRUGS (5)
  1. XARELTO [Suspect]
     Indication: CEREBRAL INFARCTION
     Route: 048
     Dates: start: 20130919, end: 20131219
  2. XARELTO [Suspect]
     Indication: CEREBROVASCULAR ACCIDENT PROPHYLAXIS
     Route: 048
     Dates: start: 20130919, end: 20131219
  3. XARELTO [Suspect]
     Indication: ATRIAL FIBRILLATION
     Route: 048
     Dates: start: 20130919, end: 20131219
  4. LIPITOR [Concomitant]
     Indication: HYPERLIPIDAEMIA
     Route: 048
     Dates: start: 20130502
  5. PARAMIDIN [Concomitant]
     Indication: HYPERURICAEMIA
     Route: 048
     Dates: start: 20130905, end: 20130918

REACTIONS (1)
  - Retinal artery occlusion [Not Recovered/Not Resolved]
